FAERS Safety Report 21999899 (Version 3)
Quarter: 2023Q1

REPORT INFORMATION
  Report Type: Spontaneous
  Country: US (occurrence: US)
  Receive Date: 20230216
  Receipt Date: 20230331
  Transmission Date: 20230417
  Serious: No
  Sender: FDA-Public Use
  Company Number: US-SANOFI-01487465

PATIENT
  Age: 29 Year
  Sex: Female
  Weight: 81 kg

DRUGS (2)
  1. DUPIXENT [Suspect]
     Active Substance: DUPILUMAB
     Indication: Dermatitis atopic
     Dosage: 600 MG, 1X
     Route: 065
     Dates: start: 20230220, end: 20230220
  2. PREDNISONE [Suspect]
     Active Substance: PREDNISONE
     Indication: Bronchitis
     Dosage: UNK
     Route: 065
     Dates: start: 202302, end: 202302

REACTIONS (10)
  - Dyspnoea [Unknown]
  - Asthma [Unknown]
  - Heart rate increased [Not Recovered/Not Resolved]
  - Axillary pain [Unknown]
  - Influenza B virus test positive [Unknown]
  - Blister [Unknown]
  - Pain [Unknown]
  - Tenderness [Recovering/Resolving]
  - Herpes zoster [Unknown]
  - Eczema [Unknown]

NARRATIVE: CASE EVENT DATE: 20230201
